FAERS Safety Report 8127204-9 (Version None)
Quarter: 2012Q1

REPORT INFORMATION
  Report Type: 
  Country: None (occurrence: None)
  Receive Date: 20120210
  Receipt Date: 20120201
  Transmission Date: 20120608
  Serious: Yes (Death, Other)
  Sender: FDA-Public Use
  Company Number: US-NAPPMUNDI-USA-2012-0081793

PATIENT
  Sex: Female

DRUGS (2)
  1. MARIJUANA [Suspect]
     Indication: SUBSTANCE ABUSE
  2. OXYCONTIN [Suspect]
     Indication: PRODUCT USED FOR UNKNOWN INDICATION

REACTIONS (3)
  - ROAD TRAFFIC ACCIDENT [None]
  - IMPAIRED DRIVING ABILITY [None]
  - SUBSTANCE ABUSE [None]
